FAERS Safety Report 7330042-8 (Version None)
Quarter: 2011Q1

REPORT INFORMATION
  Report Type: 
  Country: None (occurrence: None)
  Receive Date: 20110303
  Receipt Date: 20110216
  Transmission Date: 20110831
  Serious: Yes (Hospitalization)
  Sender: FDA-Public Use
  Company Number: US-BAYER-201021849NA

PATIENT
  Sex: Female
  Weight: 65.76 kg

DRUGS (4)
  1. YASMIN [Suspect]
     Indication: PRODUCT USED FOR UNKNOWN INDICATION
     Dosage: AS USED DOSE: UNK
     Route: 048
     Dates: start: 20070601, end: 20090701
  2. LOVENOX [Concomitant]
     Indication: DEEP VEIN THROMBOSIS
  3. NSAID'S [Concomitant]
  4. YAZ [Suspect]
     Indication: PREMENSTRUAL SYNDROME
     Dosage: AS USED DOSE: UNK
     Route: 048
     Dates: start: 20070601, end: 20090701

REACTIONS (10)
  - ABDOMINAL PAIN UPPER [None]
  - CHOLECYSTITIS ACUTE [None]
  - BILE DUCT STONE [None]
  - NAUSEA [None]
  - CHOLELITHIASIS [None]
  - OEDEMA PERIPHERAL [None]
  - THROMBOPHLEBITIS SUPERFICIAL [None]
  - PAIN IN EXTREMITY [None]
  - ERYTHEMA [None]
  - ABDOMINAL TENDERNESS [None]
